FAERS Safety Report 18372068 (Version 2)
Quarter: 2020Q4

REPORT INFORMATION
  Report Type: Spontaneous
  Country: US (occurrence: US)
  Receive Date: 20201012
  Receipt Date: 20201021
  Transmission Date: 20210114
  Serious: Yes (Hospitalization)
  Sender: FDA-Public Use
  Company Number: US-PFIZER INC-2020389641

PATIENT
  Age: 82 Year
  Sex: Male

DRUGS (2)
  1. BRAFTOVI [Suspect]
     Active Substance: ENCORAFENIB
     Indication: MALIGNANT MELANOMA
     Dosage: 450 MG, DAILY
     Dates: start: 20200724
  2. MEKTOVI [Suspect]
     Active Substance: BINIMETINIB
     Indication: MALIGNANT MELANOMA
     Dosage: 45 MG, 2X/DAY
     Dates: start: 20200724

REACTIONS (8)
  - Asthenia [Unknown]
  - Muscular weakness [Unknown]
  - Rash [Unknown]
  - Fall [Unknown]
  - Fatigue [Unknown]
  - Oral pain [Unknown]
  - Malaise [Unknown]
  - Blood sodium decreased [Unknown]
